FAERS Safety Report 9051549 (Version 1)
Quarter: 2013Q1

REPORT INFORMATION
  Report Type: Report from Study
  Country: DE (occurrence: DE)
  Receive Date: 20130207
  Receipt Date: 20130207
  Transmission Date: 20140127
  Serious: Yes (Other)
  Sender: FDA-Public Use
  Company Number: DE-009507513-1302DEU002175

PATIENT
  Age: 75 Year
  Sex: Female
  Weight: 80 kg

DRUGS (2)
  1. MK-0217 [Suspect]
     Dosage: UNK, QW
     Route: 048
     Dates: end: 20121220
  2. ALENDRONATE SODIUM [Suspect]
     Indication: OSTEOPOROSIS
     Dosage: UNK, QW
     Route: 048
     Dates: end: 20121220

REACTIONS (1)
  - Dental fistula [Not Recovered/Not Resolved]
